FAERS Safety Report 9769570 (Version 2)
Quarter: 2013Q4

REPORT INFORMATION
  Report Type: Spontaneous
  Country: US (occurrence: US)
  Receive Date: 20131218
  Receipt Date: 20131218
  Transmission Date: 20140711
  Serious: No
  Sender: FDA-Public Use
  Company Number: US-SHIONOGI, INC-2013000358

PATIENT
  Age: 91 Year
  Sex: Female
  Weight: 68.03 kg

DRUGS (12)
  1. ASPIRIN LOW [Concomitant]
     Indication: PRODUCT USED FOR UNKNOWN INDICATION
     Dosage: UNK
     Route: 065
  2. NAMENDA [Concomitant]
     Indication: PRODUCT USED FOR UNKNOWN INDICATION
     Dosage: UNK
     Route: 065
  3. LEVOTHYROXINE SODIUM [Concomitant]
     Indication: THYROID DISORDER
     Dosage: UNK
     Route: 065
  4. ATENOLOL [Concomitant]
     Indication: HYPERTENSION
     Dosage: UNK
     Route: 065
  5. ESTRADIOL [Concomitant]
     Indication: PRODUCT USED FOR UNKNOWN INDICATION
     Dosage: UNK
     Dates: start: 20131014
  6. OSPHENA [Suspect]
     Indication: URINARY TRACT INFECTION
     Dosage: 60 MG, QD
     Route: 048
     Dates: start: 20131104, end: 20131107
  7. OSPHENA [Suspect]
     Indication: URINARY RETENTION
  8. OSPHENA [Suspect]
     Indication: POLLAKIURIA
  9. OSPHENA [Suspect]
     Indication: OFF LABEL USE
  10. FLOMAX [Concomitant]
     Indication: URINE FLOW DECREASED
     Dosage: UNK
     Route: 065
  11. LOSARTIN [Concomitant]
     Indication: HYPERTENSION
     Dosage: UNK
     Route: 065
  12. HYDROXYZINE HCL [Concomitant]
     Indication: PRODUCT USED FOR UNKNOWN INDICATION
     Dosage: UNK
     Route: 065

REACTIONS (2)
  - Rash [Unknown]
  - Off label use [Unknown]
